FAERS Safety Report 15544924 (Version 5)
Quarter: 2019Q1

REPORT INFORMATION
  Report Type: Spontaneous
  Country: CA (occurrence: CA)
  Receive Date: 20181024
  Receipt Date: 20190214
  Transmission Date: 20190417
  Serious: Yes (Other)
  Sender: FDA-Public Use
  Company Number: CA-ORION CORPORATION ORION PHARMA-TREX2018-3007

PATIENT
  Age: 48 Year
  Sex: Female

DRUGS (20)
  1. ENBREL [Suspect]
     Active Substance: ETANERCEPT
     Indication: PRODUCT USED FOR UNKNOWN INDICATION
     Dosage: 2 TIMES/WK
     Route: 058
  2. BETAMETHASONE DIPROPIONATE. [Concomitant]
     Active Substance: BETAMETHASONE DIPROPIONATE
     Route: 065
  3. CICLOSPORIN [Suspect]
     Active Substance: CYCLOSPORINE
     Route: 048
  4. ENBREL [Suspect]
     Active Substance: ETANERCEPT
     Dosage: 2X/WEEK
     Route: 058
  5. ENBREL [Suspect]
     Active Substance: ETANERCEPT
     Route: 058
  6. ENBREL [Suspect]
     Active Substance: ETANERCEPT
     Route: 058
  7. CICLOSPORIN [Suspect]
     Active Substance: CYCLOSPORINE
     Indication: PSORIASIS
     Route: 048
  8. HUMIRA [Suspect]
     Active Substance: ADALIMUMAB
     Indication: PRODUCT USED FOR UNKNOWN INDICATION
     Route: 058
  9. NEORAL [Suspect]
     Active Substance: CYCLOSPORINE
     Route: 048
  10. METHOTREXATE (TRADE NAME UNKNOWN) [Suspect]
     Active Substance: METHOTREXATE
     Indication: PRODUCT USED FOR UNKNOWN INDICATION
     Route: 065
  11. REMICADE [Suspect]
     Active Substance: INFLIXIMAB
     Indication: PRODUCT USED FOR UNKNOWN INDICATION
     Route: 042
  12. CLOBETASOL [Concomitant]
     Active Substance: CLOBETASOL
     Route: 065
  13. NEORAL [Suspect]
     Active Substance: CYCLOSPORINE
     Dosage: 2 EVERY 1 DAY
     Route: 048
  14. ENBREL [Suspect]
     Active Substance: ETANERCEPT
     Route: 058
  15. NEORAL [Suspect]
     Active Substance: CYCLOSPORINE
     Indication: PSORIASIS
     Route: 048
  16. NEORAL [Suspect]
     Active Substance: CYCLOSPORINE
     Dosage: 2 TIMES/WEEK
     Route: 048
  17. NEORAL [Suspect]
     Active Substance: CYCLOSPORINE
     Route: 048
  18. NEORAL [Suspect]
     Active Substance: CYCLOSPORINE
     Route: 048
  19. ACITRETIN. [Concomitant]
     Active Substance: ACITRETIN
     Route: 065
  20. CALCIPOTRIOL [Concomitant]
     Active Substance: CALCIPOTRIENE
     Route: 065

REACTIONS (21)
  - Psoriasis [Recovered/Resolved]
  - Blood pressure increased [Recovered/Resolved]
  - Erythema [Recovered/Resolved]
  - Arthritis [Recovered/Resolved]
  - Glycosylated haemoglobin increased [Recovered/Resolved]
  - Haemoglobin decreased [Recovered/Resolved]
  - Skin lesion [Recovered/Resolved]
  - Guttate psoriasis [Recovered/Resolved]
  - Localised oedema [Recovered/Resolved]
  - Sinusitis [Unknown]
  - Blood alkaline phosphatase increased [Recovered/Resolved]
  - Blood iron decreased [Recovered/Resolved]
  - Glucose tolerance impaired [Recovered/Resolved]
  - Pruritus [Recovered/Resolved]
  - Serum ferritin decreased [Recovered/Resolved]
  - Pneumonia [Recovered/Resolved]
  - Skin irritation [Recovered/Resolved]
  - Urticaria [Recovered/Resolved]
  - Bronchitis [Recovered/Resolved]
  - Infection [Recovered/Resolved]
  - Respiratory tract infection [Unknown]
